FAERS Safety Report 5429689-5 (Version None)
Quarter: 2007Q3

REPORT INFORMATION
  Report Type: 
  Country: None (occurrence: None)
  Receive Date: 20070829
  Receipt Date: 20070817
  Transmission Date: 20080115
  Serious: Yes (Life-Threatening)
  Sender: FDA-Public Use
  Company Number: US-GENENTECH-244710

PATIENT
  Age: 38 Year
  Sex: Male

DRUGS (4)
  1. AVASTIN [Suspect]
     Indication: COLON CANCER METASTATIC
     Dosage: 46 MG, Q2W
  2. FOLINIC ACID [Concomitant]
     Indication: COLON CANCER METASTATIC
  3. FLUOROURACIL [Concomitant]
     Indication: COLON CANCER METASTATIC
  4. OXALIPLATIN [Concomitant]
     Indication: COLON CANCER METASTATIC

REACTIONS (3)
  - ABDOMINAL PAIN UPPER [None]
  - DYSPNOEA [None]
  - FACE OEDEMA [None]
